FAERS Safety Report 4751577-8 (Version None)
Quarter: 2005Q3

REPORT INFORMATION
  Report Type: 
  Country: None (occurrence: None)
  Receive Date: 20050824
  Receipt Date: 20050812
  Transmission Date: 20060218
  Serious: Yes (Other)
  Sender: FDA-Public Use
  Company Number: JP-GLAXOSMITHKLINE-B0390610A

PATIENT
  Sex: Male

DRUGS (6)
  1. ZIAGEN [Suspect]
     Indication: HIV INFECTION
     Dosage: 300MG TWICE PER DAY
     Route: 048
     Dates: start: 20040714
  2. RETROVIR [Suspect]
     Indication: HIV INFECTION
     Dosage: 400MG PER DAY
     Route: 048
     Dates: start: 20040714
  3. VIDEX EC [Suspect]
     Indication: HIV INFECTION
     Dosage: 400MG PER DAY
     Route: 048
     Dates: start: 20040714
  4. SAWACILLIN [Concomitant]
     Indication: BRONCHITIS
     Dosage: 250MG THREE TIMES PER DAY
     Route: 048
     Dates: start: 20040714, end: 20040721
  5. OMEPRAZOLE [Concomitant]
     Dosage: 20MG PER DAY
     Route: 048
     Dates: start: 20040804, end: 20050222
  6. ALESION [Concomitant]
     Indication: SEASONAL ALLERGY
     Dosage: 20MG PER DAY
     Route: 048
     Dates: start: 20050112, end: 20050331

REACTIONS (3)
  - GASTRIC ULCER [None]
  - HELICOBACTER INFECTION [None]
  - HEPATIC FUNCTION ABNORMAL [None]
